FAERS Safety Report 15767008 (Version 2)
Quarter: 2019Q1

REPORT INFORMATION
  Report Type: Spontaneous
  Country: US (occurrence: US)
  Receive Date: 20181227
  Receipt Date: 20190320
  Transmission Date: 20190417
  Serious: No
  Sender: FDA-Public Use
  Company Number: US-CELGENEUS-USA-20181207642

PATIENT
  Sex: Female
  Weight: 56.75 kg

DRUGS (3)
  1. THALOMID [Suspect]
     Active Substance: THALIDOMIDE
     Indication: OFF LABEL USE
     Dosage: 100 MILLIGRAM
     Route: 048
     Dates: start: 201808
  2. CLOBETASOL [Concomitant]
     Active Substance: CLOBETASOL
     Indication: NEURODERMATITIS
     Route: 061
     Dates: start: 20180221
  3. THALOMID [Suspect]
     Active Substance: THALIDOMIDE
     Indication: NEURODERMATITIS
     Route: 048
     Dates: start: 20180619

REACTIONS (1)
  - Diffuse alopecia [Recovering/Resolving]

NARRATIVE: CASE EVENT DATE: 2018
